FAERS Safety Report 9631065 (Version 1)
Quarter: 2013Q4

REPORT INFORMATION
  Report Type: Spontaneous
  Country: US (occurrence: US)
  Receive Date: 20131018
  Receipt Date: 20131018
  Transmission Date: 20140711
  Serious: Yes (Death, Other)
  Sender: FDA-Public Use
  Company Number: US-PFIZER INC-2013293469

PATIENT
  Age: 28 Year
  Sex: Female

DRUGS (1)
  1. PHENYTOIN SODIUM [Suspect]
     Indication: STATUS EPILEPTICUS
     Dosage: UNK
     Route: 042

REACTIONS (4)
  - Death [Fatal]
  - Cerebellar atrophy [Unknown]
  - Hyperthermia [Unknown]
  - Stupor [Unknown]
